FAERS Safety Report 8965421 (Version 1)
Quarter: 2012Q4

REPORT INFORMATION
  Report Type: 
  Country: CN (occurrence: CN)
  Receive Date: 20121213
  Receipt Date: 20121213
  Transmission Date: 20130627
  Serious: Yes (Death, Other)
  Sender: FDA-Public Use
  Company Number: PHHY2012CN108276

PATIENT
  Age: 29 Year
  Sex: Female

DRUGS (4)
  1. TEGRETOL [Suspect]
     Indication: MULTIPLE SCLEROSIS
     Dosage: 0.100000001g, TID
  2. TEGRETOL [Suspect]
     Dosage: 0.1 g, TID
     Route: 048
     Dates: start: 20100804, end: 20100812
  3. PREDNISONE [Concomitant]
     Dosage: 55 mg, QD
  4. AZATHIOPRINE [Concomitant]
     Dosage: 50 mg, QD
     Route: 048

REACTIONS (5)
  - Death [Fatal]
  - Epidermolysis bullosa [Unknown]
  - Drug eruption [Unknown]
  - Rash [Unknown]
  - Rash vesicular [Unknown]
